FAERS Safety Report 7224126-2 (Version None)
Quarter: 2011Q1

REPORT INFORMATION
  Report Type: 
  Country: None (occurrence: None)
  Receive Date: 20110106
  Receipt Date: 20110106
  Transmission Date: 20110831
  Serious: Yes (Hospitalization)
  Sender: FDA-Public Use
  Company Number: None

PATIENT
  Sex: Female

DRUGS (2)
  1. REVLIMID [Suspect]
     Indication: UPPER RESPIRATORY TRACT INFECTION
     Dosage: 10 MG 1 QD PO
     Route: 048
     Dates: start: 20110103
  2. REVLIMID [Suspect]
     Indication: MULTIPLE MYELOMA
     Dosage: 10 MG 1 QD PO
     Route: 048
     Dates: start: 20110103

REACTIONS (1)
  - UPPER RESPIRATORY TRACT INFECTION [None]
